FAERS Safety Report 8462568-8 (Version None)
Quarter: 2012Q2

REPORT INFORMATION
  Report Type: 
  Country: None (occurrence: None)
  Receive Date: 20120620
  Receipt Date: 20120620
  Transmission Date: 20120825
  Serious: Yes (Other)
  Sender: FDA-Public Use
  Company Number: None

PATIENT
  Sex: Female
  Weight: 77.3 kg

DRUGS (1)
  1. GEODON [Suspect]
     Indication: PSYCHOTIC DISORDER
     Dosage: GEODON  80 MG PO BID PO
     Route: 048

REACTIONS (6)
  - CHEST DISCOMFORT [None]
  - PRODUCT QUALITY ISSUE [None]
  - THROAT TIGHTNESS [None]
  - WEIGHT INCREASED [None]
  - PRODUCT SUBSTITUTION ISSUE [None]
  - DYSPNOEA [None]
